FAERS Safety Report 19387047 (Version 3)
Quarter: 2021Q3

REPORT INFORMATION
  Report Type: Spontaneous
  Country: JP (occurrence: JP)
  Receive Date: 20210608
  Receipt Date: 20210722
  Transmission Date: 20211014
  Serious: Yes (Hospitalization, Other)
  Sender: FDA-Public Use
  Company Number: JP-SA-2021SA186878

PATIENT
  Age: 46 Year
  Sex: Male
  Weight: 48 kg

DRUGS (3)
  1. CORTICOSTEROID NOS [Concomitant]
     Active Substance: CORTICOSTEROID NOS
     Indication: DERMATITIS ATOPIC
     Dosage: UNK
     Route: 061
  2. DUPIXENT [Suspect]
     Active Substance: DUPILUMAB
     Indication: DERMATITIS ATOPIC
     Dosage: 300 MG, QOW
     Route: 058
     Dates: start: 20180817, end: 202004
  3. CORTICOSTEROID NOS [Concomitant]
     Active Substance: CORTICOSTEROID NOS
     Dosage: UNK
     Route: 061

REACTIONS (3)
  - Skin mass [Recovering/Resolving]
  - Lymphadenopathy [Recovering/Resolving]
  - Diffuse large B-cell lymphoma [Recovering/Resolving]

NARRATIVE: CASE EVENT DATE: 201908
